FAERS Safety Report 8513273-0 (Version None)
Quarter: 2012Q3

REPORT INFORMATION
  Report Type: 
  Country: None (occurrence: None)
  Receive Date: 20120716
  Receipt Date: 20120712
  Transmission Date: 20120928
  Serious: Yes (Other)
  Sender: FDA-Public Use
  Company Number: KR-BAYER-2012-069674

PATIENT
  Sex: Female

DRUGS (2)
  1. YAZ [Suspect]
     Dosage: UNK
     Route: 048
     Dates: start: 20120708, end: 20120710
  2. YAZ [Suspect]
     Dosage: UNK
     Route: 048
     Dates: end: 20120501

REACTIONS (4)
  - ARRHYTHMIA [None]
  - GASTRIC ULCER [None]
  - CHEST DISCOMFORT [None]
  - FEELING ABNORMAL [None]
